FAERS Safety Report 5607355-0 (Version None)
Quarter: 2008Q1

REPORT INFORMATION
  Report Type: 
  Country: None (occurrence: None)
  Receive Date: 20080125
  Receipt Date: 20080125
  Transmission Date: 20080703
  Serious: Yes (Hospitalization)
  Sender: FDA-Public Use
  Company Number: None

PATIENT
  Sex: Male

DRUGS (2)
  1. HEPARIN [Suspect]
     Indication: CORONARY ARTERY BYPASS
     Dosage: 5000 UNITS BOLUS X1 SQ
     Route: 058
     Dates: start: 20080109, end: 20080109
  2. HEPARIN [Suspect]
     Dosage: 920 UNITS/HR IV DRIP IV DRIP
     Route: 041
     Dates: start: 20080109, end: 20080114

REACTIONS (2)
  - HYPOTENSION [None]
  - OXYGEN SATURATION DECREASED [None]
